FAERS Safety Report 9366641 (Version 3)
Quarter: 2014Q1

REPORT INFORMATION
  Report Type: Spontaneous
  Country: US (occurrence: US)
  Receive Date: 20130625
  Receipt Date: 20140130
  Transmission Date: 20141002
  Serious: Yes (Life-Threatening, Hospitalization, Other)
  Sender: FDA-Public Use
  Company Number: US-009507513-1306USA006494

PATIENT
  Age: 16 Year
  Sex: Female
  Weight: 77.98 kg

DRUGS (1)
  1. CORICIDIN HBP COUGH AND COLD [Suspect]
     Indication: INTENTIONAL DRUG MISUSE
     Dosage: UNK
     Route: 048
     Dates: end: 20130529

REACTIONS (11)
  - Loss of consciousness [Recovered/Resolved]
  - Overdose [Unknown]
  - Amnesia [Unknown]
  - Confusional state [Recovered/Resolved]
  - Nystagmus [Unknown]
  - Fall [Unknown]
  - Head injury [Recovered/Resolved]
  - Eye penetration [Recovering/Resolving]
  - Spinal pain [Recovered/Resolved]
  - Tooth injury [Recovering/Resolving]
  - Dysuria [Recovered/Resolved]
